FAERS Safety Report 5272314-7 (Version None)
Quarter: 2007Q1

REPORT INFORMATION
  Report Type: 
  Country: None (occurrence: None)
  Receive Date: 20070320
  Receipt Date: 20070320
  Transmission Date: 20070707
  Serious: No
  Sender: FDA-Public Use
  Company Number: None

PATIENT
  Age: 56 Year
  Sex: Male
  Weight: 136.5327 kg

DRUGS (1)
  1. FENTANYL [Suspect]
     Indication: PERICARDIAL DRAINAGE
     Dosage: 25 MCG ONCE IV
     Route: 042

REACTIONS (2)
  - DYSPNOEA [None]
  - WHEEZING [None]
